FAERS Safety Report 14206782 (Version 2)
Quarter: 2017Q4

REPORT INFORMATION
  Report Type: Spontaneous
  Country: FI (occurrence: FI)
  Receive Date: 20171121
  Receipt Date: 20171207
  Transmission Date: 20180321
  Serious: Yes (Hospitalization, Other)
  Sender: FDA-Public Use
  Company Number: FI-ROCHE-2022960

PATIENT
  Age: 45 Year
  Sex: Female

DRUGS (1)
  1. ROACTEMRA [Suspect]
     Active Substance: TOCILIZUMAB
     Indication: PSORIATIC ARTHROPATHY
     Route: 041
     Dates: start: 2010, end: 20160217

REACTIONS (12)
  - Renal failure [Unknown]
  - Diarrhoea [Unknown]
  - Blood creatinine increased [Unknown]
  - Vomiting [Unknown]
  - Renal abscess [Unknown]
  - Hyperkalaemia [Unknown]
  - Pyelonephritis [Unknown]
  - Hyponatraemia [Unknown]
  - Nephrectomy [Unknown]
  - Intentional product use issue [Unknown]
  - Sepsis [Unknown]
  - Off label use [Unknown]

NARRATIVE: CASE EVENT DATE: 2010
